FAERS Safety Report 8518185-4 (Version None)
Quarter: 2012Q3

REPORT INFORMATION
  Report Type: 
  Country: None (occurrence: None)
  Receive Date: 20120718
  Receipt Date: 20111021
  Transmission Date: 20120928
  Serious: Yes (Hospitalization)
  Sender: FDA-Public Use
  Company Number: US-BRISTOL-MYERS SQUIBB COMPANY-16185241

PATIENT
  Sex: Male

DRUGS (2)
  1. COUMADIN [Suspect]
     Dates: end: 20110929
  2. SAVELLA [Suspect]
     Dates: end: 20110101

REACTIONS (1)
  - GASTROINTESTINAL HAEMORRHAGE [None]
